FAERS Safety Report 4994802-0 (Version None)
Quarter: 2006Q2

REPORT INFORMATION
  Report Type: 
  Country: None (occurrence: None)
  Receive Date: 20060503
  Receipt Date: 20060420
  Transmission Date: 20061013
  Serious: Yes (Hospitalization)
  Sender: FDA-Public Use
  Company Number: 2006002084

PATIENT
  Sex: Male

DRUGS (4)
  1. VIAGRA [Suspect]
     Indication: ILL-DEFINED DISORDER
  2. DIURETICS (DIURETICS) [Concomitant]
  3. ALL OTHER THERAPEUTIC PRODUCTS (ALL OTHER THERPEUTIC PRODUCTS) [Concomitant]
  4. LIPITOR [Concomitant]

REACTIONS (2)
  - HYPERTENSION [None]
  - PERIPHERAL VASCULAR DISORDER [None]
